FAERS Safety Report 5036871-8 (Version None)
Quarter: 2006Q2

REPORT INFORMATION
  Report Type: 
  Country: None (occurrence: None)
  Receive Date: 20060628
  Receipt Date: 20060619
  Transmission Date: 20061013
  Serious: Yes (Other)
  Sender: FDA-Public Use
  Company Number: PHRM2006FR01868

PATIENT
  Age: 67 Year
  Sex: Male

DRUGS (4)
  1. EXELON [Suspect]
     Dosage: 6 MG, BID
     Route: 048
     Dates: start: 20050902
  2. TAHOR [Concomitant]
  3. CRESTOR [Concomitant]
  4. PAROXETINE HCL [Concomitant]

REACTIONS (5)
  - ELECTROCARDIOGRAM PR PROLONGATION [None]
  - HYPERHIDROSIS [None]
  - HYPOTENSION [None]
  - MALAISE [None]
  - NAUSEA [None]
